FAERS Safety Report 20132144 (Version 1)
Quarter: 2021Q4

REPORT INFORMATION
  Report Type: Spontaneous
  Country: US (occurrence: US)
  Receive Date: 20211130
  Receipt Date: 20211130
  Transmission Date: 20220303
  Serious: No
  Sender: FDA-Public Use
  Company Number: US-SANOFI-00858612

PATIENT

DRUGS (2)
  1. IPOL [Suspect]
     Active Substance: POLIOVIRUS TYPE 1 ANTIGEN (FORMALDEHYDE INACTIVATED)\POLIOVIRUS TYPE 2 ANTIGEN (FORMALDEHYDE INACTIV
     Indication: Immunisation
     Dosage: .1 ML
     Route: 023
  2. TUBERCULIN PURIFIED PROTEIN DERIVATIVE [Suspect]
     Active Substance: TUBERCULIN PURIFIED PROTEIN DERIVATIVE
     Indication: Tuberculin test
     Dosage: UNK
     Route: 065

REACTIONS (2)
  - Incorrect route of product administration [Unknown]
  - Wrong product administered [Unknown]
